FAERS Safety Report 23302025 (Version 5)
Quarter: 2024Q4

REPORT INFORMATION
  Report Type: Spontaneous
  Country: US (occurrence: US)
  Receive Date: 20231215
  Receipt Date: 20241004
  Transmission Date: 20250115
  Serious: No
  Sender: ABBVIE
  Company Number: US-ABBVIE-5541112

PATIENT
  Age: 71 Year
  Sex: Male
  Weight: 87 kg

DRUGS (8)
  1. VRAYLAR [Suspect]
     Active Substance: CARIPRAZINE
     Indication: Depression
     Dosage: FORM STRENGTH: 3 MILLIGRAM?START DATE TEXT: 6 MONTHS TO A YEAR BEFORE 2022
     Route: 048
     Dates: end: 202212
  2. BUPROPION [Concomitant]
     Active Substance: BUPROPION
     Indication: Depression
  3. FOCALIN [Concomitant]
     Active Substance: DEXMETHYLPHENIDATE HYDROCHLORIDE
     Indication: Attention deficit hyperactivity disorder
     Dates: start: 2022
  4. ATORVASTATIN [Concomitant]
     Active Substance: ATORVASTATIN
     Indication: Blood cholesterol
  5. MIRTAZAPINE [Concomitant]
     Active Substance: MIRTAZAPINE
     Indication: Depression
  6. LOSARTAN [Concomitant]
     Active Substance: LOSARTAN
     Indication: Hypertension
  7. SPRAVATO [Concomitant]
     Active Substance: ESKETAMINE
     Indication: Depression
  8. TRAZODONE [Concomitant]
     Active Substance: TRAZODONE HYDROCHLORIDE
     Indication: Depression

REACTIONS (2)
  - Hypertension [Recovering/Resolving]
  - Therapeutic product effect decreased [Not Recovered/Not Resolved]

NARRATIVE: CASE EVENT DATE: 20240401
